FAERS Safety Report 4879518-3 (Version None)
Quarter: 2006Q1

REPORT INFORMATION
  Report Type: 
  Country: None (occurrence: None)
  Receive Date: 20060111
  Receipt Date: 20051228
  Transmission Date: 20060701
  Serious: Yes (Hospitalization)
  Sender: FDA-Public Use
  Company Number: SUSI-2005-00960

PATIENT
  Sex: Male

DRUGS (3)
  1. PENTASA [Suspect]
     Indication: COLITIS ULCERATIVE
     Dosage: 500 MG, 3X/DAY: TID, ORAL; 1500MG DAILY, ORAL
     Route: 048
     Dates: start: 20041201, end: 20050629
  2. PENTASA [Suspect]
     Indication: COLITIS ULCERATIVE
     Dosage: 500 MG, 3X/DAY: TID, ORAL; 1500MG DAILY, ORAL
     Route: 048
     Dates: start: 20051116, end: 20051215
  3. PREDNISOLONE [Concomitant]

REACTIONS (1)
  - LIVER DISORDER [None]
